FAERS Safety Report 8628802 (Version 3)
Quarter: 2012Q4

REPORT INFORMATION
  Report Type: 
  Country: US (occurrence: US)
  Receive Date: 20120621
  Receipt Date: 20120919
  Transmission Date: 20130627
  Serious: No
  Sender: FDA-Public Use
  Company Number: US-ASTRAZENECA-2012SE38109

PATIENT
  Age: 65 Year
  Sex: Female

DRUGS (4)
  1. NEXIUM [Suspect]
     Route: 048
  2. PRILOSEC [Suspect]
     Indication: HIATUS HERNIA
     Route: 048
  3. CRESTOR [Suspect]
     Route: 048
  4. ZOCOR [Concomitant]

REACTIONS (5)
  - Hernia [Unknown]
  - Gastrooesophageal sphincter insufficiency [Unknown]
  - Abdominal pain upper [Unknown]
  - Drug effect incomplete [Unknown]
  - Drug ineffective [Unknown]
